FAERS Safety Report 8261413-3 (Version None)
Quarter: 2012Q2

REPORT INFORMATION
  Report Type: 
  Country: None (occurrence: None)
  Receive Date: 20120405
  Receipt Date: 20120323
  Transmission Date: 20120825
  Serious: Yes (Death, Other)
  Sender: FDA-Public Use
  Company Number: DK-PFIZER INC-2011256685

PATIENT
  Age: 69 Year
  Sex: Female

DRUGS (11)
  1. CORDARONE [Interacting]
     Indication: ATRIAL FIBRILLATION
     Dosage: 200 MG, DAILY
     Route: 048
     Dates: start: 20100612
  2. PRIMPERAN TAB [Interacting]
     Indication: NAUSEA
     Dosage: 0.19 MG/KG, UNK
     Route: 065
     Dates: start: 20110315
  3. IBUPROFEN [Concomitant]
     Indication: PAIN
     Dosage: UNK
     Dates: start: 20110415
  4. FEXOFENADINE HCL [Suspect]
     Indication: RHINITIS ALLERGIC
     Dosage: 180 MG, DAILY
     Route: 048
     Dates: start: 20090312
  5. CIPROFLOXACIN HYDROCHLORIDE [Suspect]
     Indication: URINARY TRACT INFECTION
     Dosage: 500 MG, 2X/DAY
     Route: 048
     Dates: start: 20110414
  6. WARFARIN [Concomitant]
     Dosage: UNK
     Dates: start: 20100312
  7. PAMOL [Concomitant]
     Dosage: UNK
     Dates: start: 20100312
  8. CODEINE [Concomitant]
     Dosage: UNK
     Dates: start: 20110414
  9. PRIMPERAN TAB [Interacting]
     Dosage: UNK
     Dates: start: 20110315
  10. ATORVASTATIN [Concomitant]
     Dosage: UNK
     Dates: start: 20100312
  11. ZOPICLONE [Concomitant]
     Indication: INSOMNIA
     Dosage: UNK
     Dates: start: 20110413

REACTIONS (5)
  - ELECTROCARDIOGRAM QT PROLONGED [None]
  - DRUG INTERACTION [None]
  - DRUG LEVEL INCREASED [None]
  - TOXICITY TO VARIOUS AGENTS [None]
  - ARRHYTHMIA [None]
